FAERS Safety Report 25861927 (Version 1)
Quarter: 2025Q3

REPORT INFORMATION
  Report Type: Spontaneous
  Country: US (occurrence: US)
  Receive Date: 20250930
  Receipt Date: 20250930
  Transmission Date: 20251020
  Serious: No
  Sender: SANOFI AVENTIS
  Company Number: US-SA-2025SA287001

PATIENT
  Age: 21 Year
  Sex: Male

DRUGS (4)
  1. ELOCTATE [Suspect]
     Active Substance: EFMOROCTOCOG ALFA
     Indication: Factor VIII deficiency
     Dosage: 3500 UNITS (3150-3850) , EVERY 4 DAYS AND EVERY 24 HOURS AS NEEDED FOR BLEEDS.
     Route: 042
     Dates: start: 202303
  2. ELOCTATE [Suspect]
     Active Substance: EFMOROCTOCOG ALFA
     Indication: Factor VIII deficiency
     Dosage: 3500 UNITS (3150-3850) , EVERY 4 DAYS AND EVERY 24 HOURS AS NEEDED FOR BLEEDS.
     Route: 042
     Dates: start: 202303
  3. ELOCTATE [Suspect]
     Active Substance: EFMOROCTOCOG ALFA
     Route: 042
     Dates: start: 202303
  4. ELOCTATE [Suspect]
     Active Substance: EFMOROCTOCOG ALFA
     Route: 042
     Dates: start: 202303

REACTIONS (2)
  - Haemorrhage [Unknown]
  - Neck pain [Unknown]

NARRATIVE: CASE EVENT DATE: 20250922
